FAERS Safety Report 15208148 (Version 3)
Quarter: 2018Q3

REPORT INFORMATION
  Report Type: Report from Study
  Country: US (occurrence: US)
  Receive Date: 20180727
  Receipt Date: 20180924
  Transmission Date: 20181010
  Serious: Yes (Hospitalization)
  Sender: FDA-Public Use
  Company Number: PHHO2018US008587

PATIENT
  Age: 68 Year
  Sex: Female
  Weight: 84 kg

DRUGS (27)
  1. VANCOMYCIN [Concomitant]
     Active Substance: VANCOMYCIN
     Indication: OSTEOMYELITIS
     Dosage: 1 G, Q12H
     Route: 042
     Dates: start: 20170730
  2. SYNTHROID [Concomitant]
     Active Substance: LEVOTHYROXINE SODIUM
     Dosage: 100 MG, QD
     Route: 048
     Dates: start: 20170730
  3. CEFTRIAXONE. [Concomitant]
     Active Substance: CEFTRIAXONE
     Indication: LEUKOCYTOSIS
     Dosage: 2000 MG, QD
     Route: 042
     Dates: start: 20170815
  4. LOSARTAN. [Concomitant]
     Active Substance: LOSARTAN
     Indication: CARDIAC FAILURE CONGESTIVE
     Dosage: 50 MG, BID
     Route: 048
     Dates: start: 2010, end: 20170602
  5. LEVOFLOXACIN. [Concomitant]
     Active Substance: LEVOFLOXACIN
     Indication: LEUKOCYTOSIS
     Dosage: 150 ML, QD
     Route: 042
     Dates: start: 20170615, end: 20170615
  6. HUMALOG [Concomitant]
     Active Substance: INSULIN LISPRO
     Indication: TYPE 2 DIABETES MELLITUS
     Dosage: 15 IU, TID
     Route: 065
     Dates: start: 2007
  7. SILVADENE [Concomitant]
     Active Substance: SILVER SULFADIAZINE
     Indication: DIABETIC ULCER
     Dosage: 1 DF, BID
     Route: 061
     Dates: start: 20170730
  8. RANEXA [Concomitant]
     Active Substance: RANOLAZINE
     Indication: ANGINA PECTORIS
     Dosage: 500 MG, BID
     Route: 048
     Dates: start: 2015
  9. ZOSIN [Concomitant]
     Active Substance: CLARITHROMYCIN
     Indication: OSTEOMYELITIS
     Dosage: 2 G, Q12H
     Route: 042
     Dates: start: 20170730
  10. FUROSEMIDE. [Concomitant]
     Active Substance: FUROSEMIDE
     Indication: CARDIAC FAILURE CONGESTIVE
     Dosage: 40 MG, QD
     Route: 065
     Dates: start: 20170317, end: 20170602
  11. ENTRESTO [Suspect]
     Active Substance: SACUBITRIL\VALSARTAN
     Dosage: UNK
     Route: 048
  12. ACETAMINOPHEN. [Concomitant]
     Active Substance: ACETAMINOPHEN
     Indication: PYREXIA
     Dosage: 1000 MG, PRN
     Route: 048
     Dates: start: 20170615, end: 20170621
  13. LANTUS [Concomitant]
     Active Substance: INSULIN GLARGINE
     Indication: TYPE 2 DIABETES MELLITUS
     Dosage: 40 IU, QHS
     Route: 065
     Dates: start: 2007
  14. LEVEMIR [Concomitant]
     Active Substance: INSULIN DETEMIR
     Indication: TYPE 2 DIABETES MELLITUS
     Dosage: 191 U, QD
     Route: 058
     Dates: start: 20170730
  15. MUPIROCIN. [Concomitant]
     Active Substance: MUPIROCIN
     Indication: PRODUCT USED FOR UNKNOWN INDICATION
     Dosage: 1 G, BID
     Route: 065
     Dates: start: 20170801
  16. ISOSORBIDE. [Concomitant]
     Active Substance: ISOSORBIDE
     Indication: CORONARY ARTERY DISEASE
     Dosage: 60 MG, QD
     Route: 048
     Dates: start: 2007, end: 20170730
  17. HEPARIN [Concomitant]
     Active Substance: HEPARIN SODIUM
     Indication: PROPHYLAXIS
     Dosage: 5000 IU, Q8H
     Route: 058
     Dates: start: 20170730
  18. MAGNESIUM SULPHATE [Concomitant]
     Active Substance: MAGNESIUM SULFATE
     Indication: HYPOMAGNESAEMIA
     Dosage: 50 ML, QD
     Route: 042
     Dates: start: 20170731
  19. PEPCID [Concomitant]
     Active Substance: FAMOTIDINE
     Indication: PRODUCT USED FOR UNKNOWN INDICATION
     Dosage: 20 MG, Q12H
     Route: 042
     Dates: start: 20170730
  20. METFORMIN [Concomitant]
     Active Substance: METFORMIN HYDROCHLORIDE
     Indication: DIABETES MELLITUS
     Dosage: 500 MG, BID
     Route: 065
     Dates: start: 2012
  21. ATORVASTATIN [Concomitant]
     Active Substance: ATORVASTATIN
     Indication: HYPERLIPIDAEMIA
     Dosage: 40 MG, QHS
     Route: 065
     Dates: start: 2012
  22. ENTRESTO [Suspect]
     Active Substance: SACUBITRIL\VALSARTAN
     Indication: CARDIAC FAILURE
     Dosage: 49/50 MG BID
     Route: 048
     Dates: start: 20170520, end: 20170729
  23. ASPIRIN. [Concomitant]
     Active Substance: ASPIRIN
     Indication: CORONARY ARTERY DISEASE
     Dosage: 81 MG, QD
     Route: 065
     Dates: start: 1995
  24. PLAVIX [Concomitant]
     Active Substance: CLOPIDOGREL BISULFATE
     Indication: CORONARY ARTERY DISEASE
     Dosage: 75 MG, QD
     Route: 065
     Dates: start: 2007
  25. CARVEDILOL. [Concomitant]
     Active Substance: CARVEDILOL
     Indication: CARDIAC FAILURE CONGESTIVE
     Dosage: 12.5 MG, BID
     Route: 048
     Dates: start: 2012, end: 20170630
  26. SYNTHROID [Concomitant]
     Active Substance: LEVOTHYROXINE SODIUM
     Indication: HYPOTHYROIDISM
     Dosage: 75 MCG/ML, QD
     Route: 048
     Dates: start: 2005
  27. HCTZ [Concomitant]
     Active Substance: HYDROCHLOROTHIAZIDE
     Indication: CARDIAC FAILURE CONGESTIVE
     Dosage: 25 MG, QD
     Route: 048
     Dates: start: 20170621

REACTIONS (2)
  - Cough [Not Recovered/Not Resolved]
  - Laryngeal stenosis [Not Recovered/Not Resolved]

NARRATIVE: CASE EVENT DATE: 20170628
